FAERS Safety Report 16123048 (Version 1)
Quarter: 2019Q1

REPORT INFORMATION
  Report Type: Spontaneous
  Country: US (occurrence: US)
  Receive Date: 20190327
  Receipt Date: 20190327
  Transmission Date: 20190418
  Serious: Yes (Hospitalization)
  Sender: FDA-Public Use
  Company Number: US-JNJFOC-20190336593

PATIENT
  Sex: Male

DRUGS (1)
  1. XARELTO [Suspect]
     Active Substance: RIVAROXABAN
     Indication: MESENTERIC VEIN THROMBOSIS
     Route: 048
     Dates: start: 20170618

REACTIONS (6)
  - Vomiting [Unknown]
  - Asthenia [Unknown]
  - Off label use [Unknown]
  - Fatigue [Unknown]
  - Product use in unapproved indication [Unknown]
  - Occult blood [Unknown]

NARRATIVE: CASE EVENT DATE: 20170618
